FAERS Safety Report 6108641-0 (Version None)
Quarter: 2009Q1

REPORT INFORMATION
  Report Type: 
  Country: None (occurrence: None)
  Receive Date: 20090305
  Receipt Date: 20090223
  Transmission Date: 20090719
  Serious: Yes (Hospitalization)
  Sender: FDA-Public Use
  Company Number: TCI2008A06090

PATIENT
  Age: 71 Year
  Sex: Female

DRUGS (2)
  1. LANSOPRAZOLE [Suspect]
     Indication: GASTRIC ULCER HAEMORRHAGE
     Route: 048
     Dates: start: 20071101, end: 20080301
  2. SULINDAC [Concomitant]

REACTIONS (3)
  - COLITIS COLLAGENOUS [None]
  - COLITIS ISCHAEMIC [None]
  - LARGE INTESTINAL ULCER [None]
